FAERS Safety Report 21068031 (Version 6)
Quarter: 2022Q4

REPORT INFORMATION
  Report Type: Spontaneous
  Country: US (occurrence: US)
  Receive Date: 20220712
  Receipt Date: 20221220
  Transmission Date: 20230113
  Serious: No
  Sender: FDA-Public Use
  Company Number: US-BRISTOL-MYERS SQUIBB COMPANY-2022-063187

PATIENT
  Age: 68 Year
  Sex: Female

DRUGS (1)
  1. REVLIMID [Suspect]
     Active Substance: LENALIDOMIDE
     Indication: Plasma cell myeloma
     Dosage: FREQUENCY : TAKE 1 CAPSULE BY MOUTH DAILY ON 21 DAYS  ON 7 DAYS OFF
     Route: 048
     Dates: start: 20190420

REACTIONS (9)
  - Diarrhoea [Unknown]
  - Nausea [Unknown]
  - Sinusitis [Unknown]
  - Muscle spasms [Unknown]
  - Pyrexia [Unknown]
  - Cough [Unknown]
  - Ear infection [Unknown]
  - Urinary tract infection [Recovered/Resolved]
  - Oropharyngeal pain [Recovered/Resolved]
